FAERS Safety Report 7130346-8 (Version None)
Quarter: 2010Q4

REPORT INFORMATION
  Report Type: 
  Country: None (occurrence: None)
  Receive Date: 20101201
  Receipt Date: 20101118
  Transmission Date: 20110411
  Serious: Yes (Other)
  Sender: FDA-Public Use
  Company Number: PHHY2010US78723

PATIENT
  Sex: Male

DRUGS (12)
  1. GLEEVEC [Suspect]
     Dosage: 400 MG, QD
  2. FISH OIL [Concomitant]
     Dosage: UNK
  3. DOCUSATE [Concomitant]
     Dosage: 100 MG, TID
  4. LISINOPRIL [Concomitant]
     Dosage: UNK
  5. POTASSIUM GLUTAMATE [Concomitant]
     Dosage: UNK
  6. ZANTAC [Concomitant]
     Dosage: UNK
  7. RANITIDINE [Concomitant]
     Dosage: UNK
  8. METOPROLOL [Concomitant]
     Dosage: UNK
  9. ASPIRIN [Concomitant]
     Dosage: UNK
  10. WARFARIN [Concomitant]
     Dosage: UNK
  11. LOVASTATIN [Concomitant]
     Dosage: UNK
  12. COUMADIN [Concomitant]
     Dosage: UNK

REACTIONS (1)
  - CEREBROVASCULAR ACCIDENT [None]
